FAERS Safety Report 23282560 (Version 1)
Quarter: 2023Q4

REPORT INFORMATION
  Report Type: Spontaneous
  Country: US (occurrence: None)
  Receive Date: 20231208
  Receipt Date: 20231208
  Transmission Date: 20240109
  Serious: Yes (Disabling)
  Sender: FDA-Public Use
  Company Number: None

PATIENT
  Age: 44 Year
  Sex: Female
  Weight: 162 kg

DRUGS (12)
  1. NALTREXONE [Suspect]
     Active Substance: NALTREXONE
  2. ROPINIROLE [Concomitant]
     Active Substance: ROPINIROLE
  3. FLUOXETINE [Concomitant]
     Active Substance: FLUOXETINE HYDROCHLORIDE
  4. METOPROLOL [Concomitant]
     Active Substance: METOPROLOL
  5. XARELTO [Concomitant]
     Active Substance: RIVAROXABAN
  6. FLECAINIDE [Concomitant]
     Active Substance: FLECAINIDE
  7. HYDROCODONE [Concomitant]
     Active Substance: HYDROCODONE
  8. Spirolactine [Concomitant]
  9. VITAMIN D [Concomitant]
     Active Substance: VITAMIN D NOS
  10. VITAMIN B12 [Concomitant]
     Active Substance: CYANOCOBALAMIN
  11. FOLIC ACID [Concomitant]
     Active Substance: FOLIC ACID
  12. ADVIL [Concomitant]
     Active Substance: IBUPROFEN

REACTIONS (3)
  - Injection site pruritus [None]
  - Injection site mass [None]
  - Injection site pain [None]

NARRATIVE: CASE EVENT DATE: 20141014
